FAERS Safety Report 7774243-3 (Version None)
Quarter: 2011Q3

REPORT INFORMATION
  Report Type: 
  Country: None (occurrence: None)
  Receive Date: 20110921
  Receipt Date: 20110908
  Transmission Date: 20111222
  Serious: Yes (Life-Threatening, Other)
  Sender: FDA-Public Use
  Company Number: 2011P1007524

PATIENT
  Age: 75 Year
  Sex: Female

DRUGS (12)
  1. TAMOXIFEN CITRATE [Concomitant]
  2. IBUPROFEN [Concomitant]
  3. DOXAZOSIN MESYLATE [Concomitant]
  4. DOCUSATE SODIUM [Concomitant]
  5. CANDESARTAN CILEXETIL [Concomitant]
  6. ZOPICLONE [Concomitant]
  7. CLARITHROMYCIN [Suspect]
     Indication: LOWER RESPIRATORY TRACT INFECTION
     Dosage: 1000 MG; QD; PO
     Route: 048
     Dates: start: 20110501, end: 20110501
  8. SEVELAMER [Concomitant]
  9. FENTANYL [Suspect]
     Indication: PAIN
     Dosage: 87 MCG; TDER
     Route: 062
     Dates: end: 20110501
  10. DEXAMETHASONE [Concomitant]
  11. ACETAMINOPHEN [Concomitant]
  12. AMITRIPTYLINE HCL [Concomitant]

REACTIONS (5)
  - SOMNOLENCE [None]
  - RESPIRATORY TRACT INFECTION [None]
  - RESPIRATORY FAILURE [None]
  - DRUG INTERACTION [None]
  - RESPIRATORY ARREST [None]
